FAERS Safety Report 8895904 (Version 1)
Quarter: 2012Q4

REPORT INFORMATION
  Report Type: 
  Country: US (occurrence: US)
  Receive Date: 20121107
  Receipt Date: 20121107
  Transmission Date: 20130627
  Serious: No
  Sender: FDA-Public Use
  Company Number: US-ASTRAZENECA-2012SE13543

PATIENT
  Age: 47 Year
  Sex: Female

DRUGS (1)
  1. ZOMIG NASAL SPRAY [Suspect]
     Route: 045

REACTIONS (3)
  - Therapeutic response unexpected [Unknown]
  - Migraine [Unknown]
  - Incorrect dose administered [Unknown]
